FAERS Safety Report 4527690-7 (Version None)
Quarter: 2004Q4

REPORT INFORMATION
  Report Type: 
  Country: None (occurrence: None)
  Receive Date: 20041130
  Receipt Date: 20041011
  Transmission Date: 20050328
  Serious: No
  Sender: FDA-Public Use
  Company Number: WAES 0410USA01684

PATIENT
  Age: 65 Year
  Sex: Male

DRUGS (5)
  1. ZETIA [Suspect]
     Indication: BLOOD CHOLESTEROL INCREASED
     Dosage: 10 MG/DAILY/PO
     Route: 048
     Dates: start: 20040917, end: 20040930
  2. COUMADIN [Concomitant]
  3. PRINIVIL [Concomitant]
  4. ZOCOR [Concomitant]
  5. ALLOPURINOL [Concomitant]

REACTIONS (1)
  - HAEMORRHAGE [None]
